FAERS Safety Report 23249313 (Version 1)
Quarter: 2023Q4

REPORT INFORMATION
  Report Type: Report from Study
  Country: US (occurrence: US)
  Receive Date: 20231201
  Receipt Date: 20231201
  Transmission Date: 20240110
  Serious: Yes (Other)
  Sender: FDA-Public Use
  Company Number: US-AZURITY PHARMACEUTICALS, INC.-US-2023ARB004959

PATIENT
  Sex: Male

DRUGS (28)
  1. ZONISAMIDE [Suspect]
     Active Substance: ZONISAMIDE
     Indication: Seizure
     Dosage: UNK
  2. ZONISAMIDE [Suspect]
     Active Substance: ZONISAMIDE
     Indication: Myoclonic epilepsy
  3. ZONISAMIDE [Suspect]
     Active Substance: ZONISAMIDE
     Indication: Petit mal epilepsy
  4. ZONISAMIDE [Suspect]
     Active Substance: ZONISAMIDE
     Indication: Atonic seizures
  5. TOPIRAMATE [Suspect]
     Active Substance: TOPIRAMATE
     Indication: Seizure
     Dosage: UNK
  6. TOPIRAMATE [Suspect]
     Active Substance: TOPIRAMATE
     Indication: Myoclonic epilepsy
  7. TOPIRAMATE [Suspect]
     Active Substance: TOPIRAMATE
     Indication: Petit mal epilepsy
  8. TOPIRAMATE [Suspect]
     Active Substance: TOPIRAMATE
     Indication: Atonic seizures
  9. CARBAMAZEPINE [Suspect]
     Active Substance: CARBAMAZEPINE
     Indication: Seizure
     Dosage: UNK
  10. CARBAMAZEPINE [Suspect]
     Active Substance: CARBAMAZEPINE
     Indication: Myoclonic epilepsy
  11. CARBAMAZEPINE [Suspect]
     Active Substance: CARBAMAZEPINE
     Indication: Petit mal epilepsy
  12. CARBAMAZEPINE [Suspect]
     Active Substance: CARBAMAZEPINE
     Indication: Atonic seizures
  13. CLOBAZAM [Suspect]
     Active Substance: CLOBAZAM
     Indication: Seizure
     Dosage: UNK
  14. CLOBAZAM [Suspect]
     Active Substance: CLOBAZAM
     Indication: Myoclonic epilepsy
  15. CLOBAZAM [Suspect]
     Active Substance: CLOBAZAM
     Indication: Petit mal epilepsy
  16. CLOBAZAM [Suspect]
     Active Substance: CLOBAZAM
     Indication: Atonic seizures
  17. LEVETIRACETAM [Suspect]
     Active Substance: LEVETIRACETAM
     Indication: Seizure
     Dosage: UNK
  18. LEVETIRACETAM [Suspect]
     Active Substance: LEVETIRACETAM
     Indication: Myoclonic epilepsy
  19. LEVETIRACETAM [Suspect]
     Active Substance: LEVETIRACETAM
     Indication: Petit mal epilepsy
  20. LEVETIRACETAM [Suspect]
     Active Substance: LEVETIRACETAM
     Indication: Atonic seizures
  21. STIRIPENTOL [Suspect]
     Active Substance: STIRIPENTOL
     Indication: Seizure
     Dosage: UNK
  22. STIRIPENTOL [Suspect]
     Active Substance: STIRIPENTOL
     Indication: Myoclonic epilepsy
  23. STIRIPENTOL [Suspect]
     Active Substance: STIRIPENTOL
     Indication: Petit mal epilepsy
  24. STIRIPENTOL [Suspect]
     Active Substance: STIRIPENTOL
     Indication: Atonic seizures
  25. PHENOBARBITAL [Concomitant]
     Active Substance: PHENOBARBITAL
     Indication: Seizure
     Dosage: UNK
  26. PHENOBARBITAL [Concomitant]
     Active Substance: PHENOBARBITAL
     Indication: Myoclonic epilepsy
  27. PHENOBARBITAL [Concomitant]
     Active Substance: PHENOBARBITAL
     Indication: Petit mal epilepsy
  28. PHENOBARBITAL [Concomitant]
     Active Substance: PHENOBARBITAL
     Indication: Atonic seizures

REACTIONS (1)
  - Toxicity to various agents [Unknown]
